FAERS Safety Report 12053310 (Version 1)
Quarter: 2016Q1

REPORT INFORMATION
  Report Type: Spontaneous
  Country: US (occurrence: US)
  Receive Date: 20160209
  Receipt Date: 20160209
  Transmission Date: 20160526
  Serious: No
  Sender: FDA-Public Use
  Company Number: US-ENDO PHARMACEUTICALS INC.-2015-000123

PATIENT
  Sex: Male

DRUGS (1)
  1. FORTESTA [Suspect]
     Active Substance: TESTOSTERONE
     Indication: BLOOD TESTOSTERONE DECREASED
     Route: 061
     Dates: start: 2013

REACTIONS (7)
  - Night sweats [Unknown]
  - Intentional product use issue [Unknown]
  - Chills [Unknown]
  - Cold sweat [Unknown]
  - Benign prostatic hyperplasia [Unknown]
  - Body temperature fluctuation [Unknown]
  - Condition aggravated [Unknown]
